FAERS Safety Report 8886476 (Version 2)
Quarter: 2012Q4

REPORT INFORMATION
  Report Type: 
  Country: US (occurrence: US)
  Receive Date: 20121105
  Receipt Date: 20121205
  Transmission Date: 20130627
  Serious: Yes (Other)
  Sender: FDA-Public Use
  Company Number: US-009507513-1210USA014262

PATIENT
  Sex: Female

DRUGS (4)
  1. PEGINTRON [Suspect]
     Indication: HEPATITIS C
     Dosage: UNK
     Dates: start: 20121026, end: 20121121
  2. REBETOL [Suspect]
     Indication: HEPATITIS C
     Dosage: UNK
     Dates: start: 20121026, end: 20121121
  3. TELAPREVIR [Suspect]
     Indication: HEPATITIS C
     Dosage: UNK
     Dates: start: 20121026, end: 20121121
  4. CELEXA [Suspect]

REACTIONS (11)
  - Hypotension [Unknown]
  - Dizziness [Unknown]
  - Pancreatitis [Unknown]
  - Violence-related symptom [Unknown]
  - Alcoholism [Unknown]
  - Hypersomnia [Unknown]
  - Fatigue [Unknown]
  - Decreased appetite [Unknown]
  - Anger [Unknown]
  - Agitation [Unknown]
  - Diarrhoea [Unknown]
